FAERS Safety Report 15210193 (Version 2)
Quarter: 2018Q3

REPORT INFORMATION
  Report Type: Other
  Country: CN (occurrence: CN)
  Receive Date: 20180727
  Receipt Date: 20180905
  Transmission Date: 20181010
  Serious: Yes (Hospitalization)
  Sender: FDA-Public Use
  Company Number: CN-GEHC-2018CSU002841

PATIENT

DRUGS (1)
  1. VISIPAQUE [Suspect]
     Active Substance: IODIXANOL
     Indication: HEPATIC CANCER
     Dosage: 20 ML, SINGLE
     Route: 013
     Dates: start: 20180308, end: 20180308

REACTIONS (4)
  - Asphyxia [Unknown]
  - Dyspnoea [Recovering/Resolving]
  - Wheezing [Unknown]
  - Cyanosis [Unknown]

NARRATIVE: CASE EVENT DATE: 20180308
